FAERS Safety Report 24551191 (Version 4)
Quarter: 2024Q4

REPORT INFORMATION
  Report Type: Spontaneous
  Country: US (occurrence: US)
  Receive Date: 20241025
  Receipt Date: 20241218
  Transmission Date: 20250115
  Serious: Yes (Hospitalization, Other)
  Sender: MALLINCKRODT
  Company Number: US-MALLINCKRODT-MNK202406362

PATIENT
  Age: 47 Year
  Sex: Female

DRUGS (2)
  1. CORTICOTROPIN [Suspect]
     Active Substance: CORTICOTROPIN
     Indication: SJS-TEN overlap
     Dosage: 80 UNITS
     Route: 058
     Dates: start: 20240331
  2. CORTICOTROPIN [Suspect]
     Active Substance: CORTICOTROPIN
     Indication: SJS-TEN overlap

REACTIONS (9)
  - Oxygen saturation decreased [Unknown]
  - Red blood cell count decreased [Unknown]
  - Iron deficiency anaemia [Unknown]
  - Cellulitis [Unknown]
  - Heavy menstrual bleeding [Unknown]
  - Hair growth abnormal [Recovered/Resolved]
  - Furuncle [Not Recovered/Not Resolved]
  - Injection site rash [Recovered/Resolved]
  - Injection site bruising [Recovered/Resolved]

NARRATIVE: CASE EVENT DATE: 20240101
